FAERS Safety Report 10411665 (Version 1)
Quarter: 2014Q3

REPORT INFORMATION
  Report Type: Report from Study
  Country: ZA (occurrence: ZA)
  Receive Date: 20140827
  Receipt Date: 20140827
  Transmission Date: 20150326
  Serious: Yes (Other)
  Sender: FDA-Public Use
  Company Number: ZA-BAYER-2014-073079

PATIENT
  Sex: Male

DRUGS (1)
  1. BETAFERON [Suspect]
     Active Substance: INTERFERON BETA-1B
     Dosage: UNK
     Dates: start: 2007

REACTIONS (19)
  - Visual impairment [None]
  - Cognitive disorder [None]
  - Anxiety [None]
  - Injection site pain [None]
  - Injection site erythema [None]
  - Panic attack [None]
  - Paranoia [None]
  - Multiple sclerosis relapse [None]
  - Depression [None]
  - Disturbance in attention [None]
  - Stress [None]
  - Injection site rash [None]
  - Bipolar disorder [None]
  - Fatigue [None]
  - Apathy [None]
  - Fatigue [None]
  - Multiple sclerosis relapse [None]
  - Oropharyngeal pain [None]
  - Memory impairment [None]

NARRATIVE: CASE EVENT DATE: 2007
